FAERS Safety Report 6068887-7 (Version None)
Quarter: 2009Q1

REPORT INFORMATION
  Report Type: 
  Country: None (occurrence: None)
  Receive Date: 20090206
  Receipt Date: 20090126
  Transmission Date: 20090719
  Serious: Yes (Disabling, Other)
  Sender: FDA-Public Use
  Company Number: US-PFIZER INC-2009165865

PATIENT
  Sex: Female
  Weight: 49.887 kg

DRUGS (2)
  1. XANAX [Suspect]
     Indication: ANXIETY
     Dosage: 2 MG, 4X/DAY
     Route: 048
     Dates: start: 20020101
  2. XANAX [Suspect]
     Indication: PANIC ATTACK

REACTIONS (8)
  - ANXIETY [None]
  - BURSITIS [None]
  - INSOMNIA [None]
  - PAIN [None]
  - PANIC ATTACK [None]
  - ROAD TRAFFIC ACCIDENT [None]
  - TENDON DISORDER [None]
  - TENDONITIS [None]
